FAERS Safety Report 7783753-4 (Version None)
Quarter: 2011Q3

REPORT INFORMATION
  Report Type: 
  Country: None (occurrence: None)
  Receive Date: 20110928
  Receipt Date: 20110919
  Transmission Date: 20111222
  Serious: Yes (Hospitalization)
  Sender: FDA-Public Use
  Company Number: US-ELI_LILLY_AND_COMPANY-US201109006390

PATIENT
  Sex: Female

DRUGS (3)
  1. HUMALOG [Suspect]
     Indication: DIABETES MELLITUS
     Dosage: SLIDING SCALE
     Route: 065
  2. LEVEMIR [Concomitant]
     Dosage: 54 U, QD
  3. HUMALOG [Suspect]
     Dosage: SLIDING SCALE
     Route: 065

REACTIONS (1)
  - URINARY TRACT INFECTION [None]
